FAERS Safety Report 10406214 (Version 4)
Quarter: 2016Q2

REPORT INFORMATION
  Report Type: Report from Study
  Country: BR (occurrence: BR)
  Receive Date: 20140825
  Receipt Date: 20160512
  Transmission Date: 20160815
  Serious: Yes (Other)
  Sender: FDA-Public Use
  Company Number: BR-ABBVIE-14K-020-1273251-00

PATIENT
  Sex: Female
  Weight: 60 kg

DRUGS (15)
  1. CALTREN [Concomitant]
     Active Substance: NITRENDIPINE
     Indication: BLOOD PRESSURE ABNORMAL
     Dosage: 1 TABLET
     Route: 048
     Dates: start: 2013
  2. OSCAL D [Concomitant]
     Active Substance: CALCIUM CARBONATE\CHOLECALCIFEROL
     Indication: BONE DISORDER
     Route: 048
     Dates: start: 201511
  3. FAMOTIDINE. [Concomitant]
     Active Substance: FAMOTIDINE
     Indication: RHEUMATOID ARTHRITIS
     Route: 048
     Dates: start: 201403
  4. RANITIDINE. [Concomitant]
     Active Substance: RANITIDINE
     Indication: ARTHRITIS
     Dosage: SUPPOSED TO LAST 30 DAYS
     Route: 048
     Dates: start: 20150420
  5. HYDROXYCHLOROQUINE [Concomitant]
     Active Substance: HYDROXYCHLOROQUINE
     Indication: RHEUMATOID ARTHRITIS
     Dosage: SUPPOSED TO LAST 30 DAYS
     Route: 048
     Dates: start: 20150420
  6. DEPURA [Concomitant]
     Active Substance: CHOLECALCIFEROL
     Indication: MINERAL SUPPLEMENTATION
     Route: 048
     Dates: start: 2014
  7. PREDNISONE. [Concomitant]
     Active Substance: PREDNISONE
     Indication: ARTHRALGIA
     Route: 048
     Dates: start: 201604
  8. ASPIRINA [Concomitant]
     Active Substance: ASPIRIN
     Indication: CAROTID ARTERY DISEASE
     Route: 048
     Dates: start: 201507
  9. HUMIRA [Suspect]
     Active Substance: ADALIMUMAB
     Route: 058
     Dates: end: 201604
  10. HYDROXYCHLOROQUINE [Concomitant]
     Active Substance: HYDROXYCHLOROQUINE
     Indication: ARTHRITIS
  11. CHLOROQUINE DIPHOSPHATE [Concomitant]
     Active Substance: CHLOROQUINE PHOSPHATE
     Indication: ARTHRALGIA
     Route: 048
  12. CALCIUM + VITAMIN D [Concomitant]
     Active Substance: CALCIUM\VITAMIN D
     Indication: RHEUMATOID ARTHRITIS
     Route: 048
     Dates: start: 201401
  13. HUMIRA [Suspect]
     Active Substance: ADALIMUMAB
     Indication: RHEUMATOID ARTHRITIS
     Route: 058
     Dates: start: 20120814
  14. LEVOID [Concomitant]
     Active Substance: LEVOTHYROXINE
     Indication: HYPERTHYROIDISM
     Dosage: 1 TABLET
     Route: 048
     Dates: start: 2013
  15. NIMESULIDE [Concomitant]
     Active Substance: NIMESULIDE
     Indication: ARTHRALGIA
     Route: 048

REACTIONS (7)
  - Weight decreased [Recovered/Resolved]
  - Nodule [Not Recovered/Not Resolved]
  - Vomiting [Recovered/Resolved]
  - Intervertebral disc calcification [Recovered/Resolved]
  - Pain in extremity [Not Recovered/Not Resolved]
  - Foot deformity [Recovered/Resolved]
  - Rheumatoid arthritis [Recovered/Resolved]

NARRATIVE: CASE EVENT DATE: 2013
